FAERS Safety Report 8588798-2 (Version None)
Quarter: 2012Q3

REPORT INFORMATION
  Report Type: 
  Country: None (occurrence: None)
  Receive Date: 20120813
  Receipt Date: 20120806
  Transmission Date: 20120928
  Serious: Yes (Other)
  Sender: FDA-Public Use
  Company Number: CN-SANOFI-AVENTIS-2012SA056873

PATIENT
  Age: 68 Year
  Sex: Female
  Weight: 62 kg

DRUGS (1)
  1. ENOXAPARIN SODIUM [Suspect]
     Route: 030
     Dates: start: 20090820, end: 20090820

REACTIONS (2)
  - COAGULOPATHY [None]
  - INTERNATIONAL NORMALISED RATIO INCREASED [None]
